FAERS Safety Report 10359992 (Version 1)
Quarter: 2014Q3

REPORT INFORMATION
  Report Type: Report from Study
  Country: TW (occurrence: TW)
  Receive Date: 20140804
  Receipt Date: 20140804
  Transmission Date: 20150326
  Serious: Yes (Hospitalization)
  Sender: FDA-Public Use
  Company Number: TW-SA-2014SA100737

PATIENT
  Age: 72 Year
  Sex: Male
  Weight: 52 kg

DRUGS (20)
  1. LACTULOSE. [Concomitant]
     Active Substance: LACTULOSE
  2. ATIVAN [Concomitant]
     Active Substance: LORAZEPAM
     Route: 048
  3. PLETAAL [Concomitant]
     Active Substance: CILOSTAZOL
  4. STILNOX [Concomitant]
     Active Substance: ZOLPIDEM TARTRATE
  5. LIPITOR [Concomitant]
     Active Substance: ATORVASTATIN CALCIUM
  6. EURODIN [Concomitant]
     Active Substance: ESTAZOLAM
     Route: 048
  7. ATORVASTATIN [Concomitant]
     Active Substance: ATORVASTATIN
  8. ASPIRIN. [Suspect]
     Active Substance: ASPIRIN
     Indication: ACUTE CORONARY SYNDROME
     Route: 065
     Dates: start: 20060705, end: 20140612
  9. PROCTOSEDYL [Concomitant]
     Active Substance: DIBUCAINE HYDROCHLORIDE\HYDROCORTISONE
  10. CLOPIDOGREL BISULFATE. [Suspect]
     Active Substance: CLOPIDOGREL BISULFATE
     Indication: ACUTE CORONARY SYNDROME
     Route: 065
     Dates: start: 20130829
  11. MOPRIDE [Concomitant]
  12. SENNAPUR [Concomitant]
  13. RIVOTRIL [Concomitant]
     Active Substance: CLONAZEPAM
  14. RIVOTRIL [Concomitant]
     Active Substance: CLONAZEPAM
     Route: 048
  15. ISMO [Concomitant]
     Active Substance: ISOSORBIDE MONONITRATE
     Route: 048
  16. CALCIUM CARBONATE. [Concomitant]
     Active Substance: CALCIUM CARBONATE
  17. DIANEAL [Concomitant]
     Active Substance: CALCIUM CHLORIDE\DEXTROSE\MAGNESIUM CHLORIDE\SODIUM CHLORIDE\SODIUM LACTATE
  18. DILATREND [Concomitant]
     Active Substance: CARVEDILOL
     Route: 048
  19. PLETAAL [Concomitant]
     Active Substance: CILOSTAZOL
  20. MOSAPRIDE [Concomitant]
     Active Substance: MOSAPRIDE

REACTIONS (3)
  - Gastrointestinal haemorrhage [Recovered/Resolved]
  - Renal failure chronic [Recovered/Resolved]
  - Angina unstable [Recovered/Resolved]

NARRATIVE: CASE EVENT DATE: 20140414
